FAERS Safety Report 10041473 (Version 2)
Quarter: 2014Q3

REPORT INFORMATION
  Report Type: Spontaneous
  Country: BR (occurrence: BR)
  Receive Date: 20140327
  Receipt Date: 20140715
  Transmission Date: 20150326
  Serious: Yes (Hospitalization, Other)
  Sender: FDA-Public Use
  Company Number: BR-ABBVIE-14P-020-1217873-00

PATIENT
  Age: 4 Year
  Sex: Female
  Weight: 22 kg

DRUGS (2)
  1. DEPAKOTE [Suspect]
     Active Substance: DIVALPROEX SODIUM
     Route: 048
  2. DEPAKOTE [Suspect]
     Active Substance: DIVALPROEX SODIUM
     Indication: MENTAL DISORDER
     Dosage: 5 CAPSULES PER DAY: 2 CAPSULES AT 7:30AM, 1 CAPSULE AT 2:00PM AND 2 CAPSULES AT 7:30PM
     Route: 048
     Dates: start: 200912

REACTIONS (7)
  - Product packaging quantity issue [Unknown]
  - Product physical issue [Unknown]
  - Pneumonia [Not Recovered/Not Resolved]
  - Vomiting [Not Recovered/Not Resolved]
  - Drug dose omission [Unknown]
  - Pyrexia [Recovered/Resolved]
  - Convulsion [Recovered/Resolved]

NARRATIVE: CASE EVENT DATE: 201403
